FAERS Safety Report 19868062 (Version 2)
Quarter: 2021Q3

REPORT INFORMATION
  Report Type: Other
  Country: CA (occurrence: CA)
  Receive Date: 20210922
  Receipt Date: 20210927
  Transmission Date: 20211014
  Serious: Yes (Hospitalization)
  Sender: FDA-Public Use
  Company Number: CA-ROCHE-2910794

PATIENT
  Age: 59 Year
  Sex: Female

DRUGS (12)
  1. ATIVAN [Concomitant]
     Active Substance: LORAZEPAM
     Indication: PRODUCT USED FOR UNKNOWN INDICATION
  2. CBD [Suspect]
     Active Substance: CANNABIDIOL
     Indication: PRODUCT USED FOR UNKNOWN INDICATION
     Route: 065
  3. OXYCODONE HYDROCHLORIDE. [Concomitant]
     Active Substance: OXYCODONE HYDROCHLORIDE
     Indication: PAIN
  4. PERCOCET [Concomitant]
     Active Substance: ACETAMINOPHEN\OXYCODONE HYDROCHLORIDE
  5. ACTEMRA [Suspect]
     Active Substance: TOCILIZUMAB
     Indication: RHEUMATOID ARTHRITIS
     Route: 058
     Dates: start: 20210907
  6. DIAZEPAM. [Concomitant]
     Active Substance: DIAZEPAM
  7. TYLENOL [Concomitant]
     Active Substance: ACETAMINOPHEN
  8. VALIUM [Concomitant]
     Active Substance: DIAZEPAM
  9. PREDNISONE. [Concomitant]
     Active Substance: PREDNISONE
  10. MIRTAZAPINE. [Concomitant]
     Active Substance: MIRTAZAPINE
  11. ACETYLSALICYLIC ACID [Concomitant]
     Active Substance: ASPIRIN
  12. AZATHIOPRINE. [Concomitant]
     Active Substance: AZATHIOPRINE
     Indication: PRODUCT USED FOR UNKNOWN INDICATION

REACTIONS (10)
  - Oropharyngeal pain [Unknown]
  - Fall [Unknown]
  - Vomiting [Unknown]
  - Head injury [Unknown]
  - Joint swelling [Unknown]
  - Muscular weakness [Unknown]
  - Ill-defined disorder [Unknown]
  - Somnambulism [Unknown]
  - Ill-defined disorder [Unknown]
  - Headache [Unknown]

NARRATIVE: CASE EVENT DATE: 20210907
